FAERS Safety Report 14664247 (Version 1)
Quarter: 2018Q1

REPORT INFORMATION
  Report Type: Spontaneous
  Country: US (occurrence: US)
  Receive Date: 20180321
  Receipt Date: 20180321
  Transmission Date: 20180509
  Serious: No
  Sender: FDA-Public Use
  Company Number: US-PFIZER INC-2018118017

PATIENT
  Age: 56 Year
  Sex: Male
  Weight: 145.6 kg

DRUGS (2)
  1. LYRICA [Suspect]
     Active Substance: PREGABALIN
     Indication: NEUROPATHY PERIPHERAL
     Dosage: 225 MG, 2X/DAY (MORNING AND NIGHT)
     Dates: start: 201701
  2. HUMULIN 70/30 [Concomitant]
     Active Substance: INSULIN HUMAN
     Indication: DIABETES MELLITUS
     Dosage: 70 UNITS, TWICE A DAY

REACTIONS (7)
  - Fatigue [Unknown]
  - Tremor [Recovering/Resolving]
  - Confusional state [Recovering/Resolving]
  - Agitation [Unknown]
  - Intentional product misuse [Unknown]
  - Feeling abnormal [Recovering/Resolving]
  - Movement disorder [Unknown]

NARRATIVE: CASE EVENT DATE: 201803
